FAERS Safety Report 9548884 (Version 2)
Quarter: 2013Q3

REPORT INFORMATION
  Report Type: Spontaneous
  Country: EC (occurrence: EC)
  Receive Date: 20130924
  Receipt Date: 20130924
  Transmission Date: 20140515
  Serious: Yes (Hospitalization)
  Sender: FDA-Public Use
  Company Number: EC-PFIZER INC-2013263793

PATIENT
  Age: 79 Year
  Sex: Female

DRUGS (1)
  1. CARDURA [Suspect]
     Indication: HYPERTENSION
     Dosage: 4 MG, 1X/DAY
     Route: 048
     Dates: start: 2008, end: 20130707

REACTIONS (1)
  - Cardio-respiratory arrest [Recovered/Resolved]
